FAERS Safety Report 6494776-X (Version None)
Quarter: 2009Q4

REPORT INFORMATION
  Report Type: 
  Country: None (occurrence: None)
  Receive Date: 20091214
  Receipt Date: 20090323
  Transmission Date: 20100525
  Serious: Yes (Hospitalization)
  Sender: FDA-Public Use
  Company Number: US-BRISTOL-MYERS SQUIBB COMPANY-14558688

PATIENT
  Sex: Female

DRUGS (2)
  1. ABILIFY [Suspect]
     Indication: BIPOLAR DISORDER
     Dosage: UNITS NOT MENTIONED.
  2. IBUPROFEN [Suspect]
     Dosage: UNITS NOT MENTIONED

REACTIONS (8)
  - BLOOD GLUCOSE INCREASED [None]
  - DEPRESSION [None]
  - FATIGUE [None]
  - HYPERTENSION [None]
  - INTENTIONAL OVERDOSE [None]
  - INTENTIONAL SELF-INJURY [None]
  - STUPOR [None]
  - SUICIDE ATTEMPT [None]
